FAERS Safety Report 4579455-8 (Version None)
Quarter: 2005Q1

REPORT INFORMATION
  Report Type: 
  Country: None (occurrence: None)
  Receive Date: 20050202
  Receipt Date: 20050202
  Transmission Date: 20050727
  Serious: Yes (Other)
  Sender: FDA-Public Use
  Company Number: None

PATIENT
  Sex: Female
  Weight: 73 kg

DRUGS (2)
  1. CYTOXAN [Suspect]
     Dates: start: 20041204
  2. ADRIAMYCIN PFS [Suspect]
     Dosage: X 6 Q 14 DAYS

REACTIONS (9)
  - BETA HAEMOLYTIC STREPTOCOCCAL INFECTION [None]
  - BRONCHITIS [None]
  - CHRONIC OBSTRUCTIVE AIRWAYS DISEASE EXACERBATED [None]
  - CULTURE URINE POSITIVE [None]
  - ENTEROCOCCAL INFECTION [None]
  - FEELING ABNORMAL [None]
  - PATHOGEN RESISTANCE [None]
  - PNEUMONIA STREPTOCOCCAL [None]
  - SPUTUM CULTURE POSITIVE [None]
